FAERS Safety Report 12468810 (Version 1)
Quarter: 2016Q2

REPORT INFORMATION
  Report Type: Spontaneous
  Country: IT (occurrence: IT)
  Receive Date: 20160615
  Receipt Date: 20160615
  Transmission Date: 20160815
  Serious: Yes (Other)
  Sender: FDA-Public Use
  Company Number: IT-WATSON-2016-12093

PATIENT
  Age: 22 Year
  Sex: Female

DRUGS (1)
  1. CLOZAPINE (UNKNOWN) [Suspect]
     Active Substance: CLOZAPINE
     Indication: SCHIZOPHRENIA
     Dosage: 200 MG, DAILY
     Route: 065

REACTIONS (1)
  - N-terminal prohormone brain natriuretic peptide increased [Recovered/Resolved]
